FAERS Safety Report 6211067-2 (Version None)
Quarter: 2009Q2

REPORT INFORMATION
  Report Type: 
  Country: None (occurrence: None)
  Receive Date: 20090602
  Receipt Date: 20090522
  Transmission Date: 20091009
  Serious: Yes (Other)
  Sender: FDA-Public Use
  Company Number: RO-BAYER-200921500GPV

PATIENT
  Age: 28 Year
  Sex: Male

DRUGS (4)
  1. CIPROFLOXACIN [Suspect]
     Indication: CROHN'S DISEASE
  2. PREDNISONE [Suspect]
     Indication: CROHN'S DISEASE
  3. INFLIXIMAB [Suspect]
     Indication: CROHN'S DISEASE
     Dosage: TWO DOSES, AT 2 WEEKS INTERVAL
  4. SULPHASALASINE [Concomitant]
     Indication: CROHN'S DISEASE

REACTIONS (2)
  - BONE TUBERCULOSIS [None]
  - ENTEROCUTANEOUS FISTULA [None]
